FAERS Safety Report 6358608-2 (Version None)
Quarter: 2009Q3

REPORT INFORMATION
  Report Type: 
  Country: None (occurrence: None)
  Receive Date: 20090916
  Receipt Date: 20090901
  Transmission Date: 20100115
  Serious: Yes (Other)
  Sender: FDA-Public Use
  Company Number: PT-PFIZER INC-2009262901

PATIENT
  Age: 69 Year

DRUGS (4)
  1. VIAGRA [Suspect]
     Indication: ERECTILE DYSFUNCTION
     Dosage: 25 MG, AS NEEDED
     Route: 048
     Dates: start: 19990101, end: 20090701
  2. LOPRESSOR [Concomitant]
     Dosage: UNK
     Route: 048
  3. TRIATEC COMP [Concomitant]
     Indication: HYPERTENSION
     Dosage: UNK
     Route: 048
  4. CRESTOR [Concomitant]
     Indication: HYPERCHOLESTEROLAEMIA
     Dosage: UNK
     Route: 048

REACTIONS (2)
  - BLINDNESS TRANSIENT [None]
  - VISUAL ACUITY REDUCED [None]
